FAERS Safety Report 7299022-5 (Version None)
Quarter: 2011Q1

REPORT INFORMATION
  Report Type: 
  Country: None (occurrence: None)
  Receive Date: 20110209
  Receipt Date: 20110201
  Transmission Date: 20110831
  Serious: Yes (Other)
  Sender: FDA-Public Use
  Company Number: 2010SP065653

PATIENT
  Age: 15 Year
  Sex: Female

DRUGS (1)
  1. NEXPLANON (ETONOGESTREL / 01502301 / ) [Suspect]
     Indication: CONTRACEPTION
     Dosage: 1 DF
     Dates: start: 20101119, end: 20101124

REACTIONS (5)
  - DEVICE DEPLOYMENT ISSUE [None]
  - DEVICE EXTRUSION [None]
  - WRONG TECHNIQUE IN DRUG USAGE PROCESS [None]
  - IMPLANT SITE CELLULITIS [None]
  - MEDICAL DEVICE COMPLICATION [None]
